FAERS Safety Report 25482769 (Version 1)
Quarter: 2025Q2

REPORT INFORMATION
  Report Type: Spontaneous
  Country: US (occurrence: None)
  Receive Date: 20250625
  Receipt Date: 20250625
  Transmission Date: 20250716
  Serious: Yes (Hospitalization)
  Sender: FDA-CTU
  Company Number: None

PATIENT
  Sex: Female

DRUGS (2)
  1. PROLIA [Suspect]
     Active Substance: DENOSUMAB
     Indication: Back pain
     Route: 058
     Dates: start: 20240920
  2. TAGRISSO [Suspect]
     Active Substance: OSIMERTINIB

REACTIONS (3)
  - Diarrhoea [None]
  - Nausea [None]
  - Insomnia [None]
